FAERS Safety Report 19707407 (Version 1)
Quarter: 2021Q3

REPORT INFORMATION
  Report Type: Spontaneous
  Country: US (occurrence: US)
  Receive Date: 20210816
  Receipt Date: 20210816
  Transmission Date: 20211014
  Serious: No
  Sender: FDA-Public Use
  Company Number: None

PATIENT
  Age: 87 Year
  Sex: Female
  Weight: 44 kg

DRUGS (1)
  1. CU 64 DOTATATE RADIOTRACER [Suspect]
     Active Substance: COPPER OXODOTREOTIDE CU-64

REACTIONS (3)
  - Pruritus [None]
  - Urticaria [None]
  - Contrast media allergy [None]

NARRATIVE: CASE EVENT DATE: 20210623
